FAERS Safety Report 5281297-5 (Version None)
Quarter: 2007Q1

REPORT INFORMATION
  Report Type: 
  Country: None (occurrence: None)
  Receive Date: 20061221
  Receipt Date: 20050518
  Transmission Date: 20070707
  Serious: No
  Sender: FDA-Public Use
  Company Number: SP00865

PATIENT
  Age: 19 Year
  Sex: Female

DRUGS (2)
  1. XIFAXAN [Suspect]
     Indication: CROHN'S DISEASE
     Dosage: 200MG/BID, ORAL
     Route: 048
     Dates: start: 20060201
  2. PENTASA [Concomitant]

REACTIONS (1)
  - VULVOVAGINAL MYCOTIC INFECTION [None]
